FAERS Safety Report 14891793 (Version 5)
Quarter: 2019Q3

REPORT INFORMATION
  Report Type: Report from Study
  Country: JP (occurrence: JP)
  Receive Date: 20180514
  Receipt Date: 20190812
  Transmission Date: 20191004
  Serious: Yes (Hospitalization)
  Sender: FDA-Public Use
  Company Number: JP-EISAI MEDICAL RESEARCH-EC-2018-039740

PATIENT
  Age: 76 Year
  Sex: Male
  Weight: 68 kg

DRUGS (21)
  1. PEMBROLIZUMAB. [Suspect]
     Active Substance: PEMBROLIZUMAB
     Indication: HEPATOCELLULAR CARCINOMA
     Route: 041
     Dates: start: 20170524, end: 20180426
  2. PEMBROLIZUMAB. [Suspect]
     Active Substance: PEMBROLIZUMAB
     Route: 041
     Dates: start: 20180607, end: 20180607
  3. AMLODIPINE [Concomitant]
     Active Substance: AMLODIPINE BESYLATE
  4. SAMSCA [Concomitant]
     Active Substance: TOLVAPTAN
  5. PREDNISOLONE. [Concomitant]
     Active Substance: PREDNISOLONE
  6. LENVATINIB [Suspect]
     Active Substance: LENVATINIB
     Route: 048
     Dates: start: 20171025, end: 20180425
  7. THYRADIN [Concomitant]
     Active Substance: LEVOTHYROXINE
  8. XYZAL [Concomitant]
     Active Substance: LEVOCETIRIZINE DIHYDROCHLORIDE
  9. LANSOPRAZOLE. [Concomitant]
     Active Substance: LANSOPRAZOLE
  10. LOXOPROFEN [Concomitant]
     Active Substance: LOXOPROFEN
  11. HIRUDOID [Concomitant]
     Active Substance: GLYCOSAMINOGLYCANS
  12. LENVATINIB [Suspect]
     Active Substance: LENVATINIB
     Indication: HEPATOCELLULAR CARCINOMA
     Route: 048
     Dates: start: 20170524, end: 20171017
  13. EQUA [Concomitant]
     Active Substance: VILDAGLIPTIN
  14. PRAZAXA [Concomitant]
     Active Substance: DABIGATRAN ETEXILATE MESYLATE
  15. DAIPHEN [Concomitant]
     Active Substance: SULFAMETHOXAZOLE\TRIMETHOPRIM
  16. LENVATINIB [Suspect]
     Active Substance: LENVATINIB
     Route: 048
     Dates: start: 20180517, end: 20180612
  17. GASCON [Concomitant]
     Active Substance: DIMETHICONE
  18. ANTEBATE [Concomitant]
     Active Substance: BETAMETHASONE DIPROPIONATE
  19. DEXAN VG [Concomitant]
  20. GLACTIV [Concomitant]
     Active Substance: SITAGLIPTIN
  21. AMARYL [Concomitant]
     Active Substance: GLIMEPIRIDE

REACTIONS (2)
  - Subarachnoid haemorrhage [Recovered/Resolved]
  - Diarrhoea [Recovered/Resolved]

NARRATIVE: CASE EVENT DATE: 20180503
